FAERS Safety Report 8409801-6 (Version None)
Quarter: 2012Q2

REPORT INFORMATION
  Report Type: 
  Country: None (occurrence: None)
  Receive Date: 20120605
  Receipt Date: 20120530
  Transmission Date: 20120825
  Serious: No
  Sender: FDA-Public Use
  Company Number: US-PFIZER INC-2012101814

PATIENT
  Sex: Male
  Weight: 84.807 kg

DRUGS (5)
  1. METFORMIN [Concomitant]
     Dosage: UNK
  2. SIMVASTATIN [Concomitant]
     Dosage: UNK
  3. LOSARTAN [Concomitant]
     Indication: HYPERTENSION
     Dosage: UNK
  4. TRILIPIX [Concomitant]
     Dosage: UNK
  5. PRISTIQ [Suspect]
     Indication: DEPRESSION
     Dosage: 50 MG, 1X/DAY
     Route: 048
     Dates: start: 20120419

REACTIONS (1)
  - RASH PRURITIC [None]
